FAERS Safety Report 9117326 (Version 1)
Quarter: 2013Q1

REPORT INFORMATION
  Report Type: Spontaneous
  Country: US (occurrence: US)
  Receive Date: 20130225
  Receipt Date: 20130225
  Transmission Date: 20140127
  Serious: No
  Sender: FDA-Public Use
  Company Number: US-009507513-1302USA010084

PATIENT
  Age: 21 None
  Sex: Female
  Weight: 81.63 kg

DRUGS (2)
  1. IMPLANON [Suspect]
     Indication: CONTRACEPTION
     Dosage: UNK
     Route: 059
     Dates: start: 201006
  2. IBUPROFEN [Concomitant]
     Indication: MUSCLE SPASMS

REACTIONS (4)
  - Breast tenderness [Unknown]
  - Muscle spasms [Unknown]
  - Amenorrhoea [Unknown]
  - Breast mass [Unknown]
